FAERS Safety Report 8590166-4 (Version None)
Quarter: 2012Q3

REPORT INFORMATION
  Report Type: 
  Country: None (occurrence: None)
  Receive Date: 20120813
  Receipt Date: 20120808
  Transmission Date: 20120928
  Serious: Yes (Death, Hospitalization, Other)
  Sender: FDA-Public Use
  Company Number: PT-PFIZER INC-2012175846

PATIENT
  Age: 62 Year
  Sex: Male
  Weight: 70 kg

DRUGS (4)
  1. PRADAXA [Suspect]
     Indication: THROMBOSIS PROPHYLAXIS
     Dosage: 150 MG (2 CAPSULES OF 75MG), 1X/DAY
     Route: 048
     Dates: start: 20120515, end: 20120530
  2. CELECOXIB [Suspect]
     Indication: INFLAMMATION
     Dosage: 200 MG, 1X/DAY (AS NEEDED)
     Route: 048
     Dates: start: 20120515, end: 20120530
  3. BACTRIM DS [Suspect]
     Indication: INFECTION PROPHYLAXIS
     Dosage: 2 DF (800MG + 160MG), 1X/DAY
     Route: 048
     Dates: start: 20120515, end: 20120530
  4. FLUDEX - SLOW RELEASE [Concomitant]
     Indication: HYPERTENSION
     Dosage: 1.5 MG, 1X/DAY
     Route: 048

REACTIONS (10)
  - STEVENS-JOHNSON SYNDROME [None]
  - RASH ERYTHEMATOUS [None]
  - FACE OEDEMA [None]
  - PRURITUS [None]
  - PYREXIA [None]
  - CHILLS [None]
  - DEATH [None]
  - TOXIC EPIDERMAL NECROLYSIS [None]
  - ODYNOPHAGIA [None]
  - OCULAR DISCOMFORT [None]
